FAERS Safety Report 23561236 (Version 5)
Quarter: 2025Q2

REPORT INFORMATION
  Report Type: Spontaneous
  Country: JP (occurrence: JP)
  Receive Date: 20240224
  Receipt Date: 20250605
  Transmission Date: 20250717
  Serious: Yes (Death, Other)
  Sender: UNITED THERAPEUTICS
  Company Number: JP-UNITED THERAPEUTICS-UNT-2023-027753

PATIENT
  Age: 72 Year
  Sex: Male
  Weight: 72.2 kg

DRUGS (26)
  1. TYVASO [Suspect]
     Active Substance: TREPROSTINIL
     Indication: Pulmonary hypertension
  2. TYVASO [Suspect]
     Active Substance: TREPROSTINIL
     Indication: Interstitial lung disease
  3. TYVASO [Suspect]
     Active Substance: TREPROSTINIL
  4. TYVASO [Suspect]
     Active Substance: TREPROSTINIL
  5. TYVASO [Suspect]
     Active Substance: TREPROSTINIL
  6. TYVASO [Suspect]
     Active Substance: TREPROSTINIL
  7. TYVASO [Suspect]
     Active Substance: TREPROSTINIL
  8. TYVASO [Suspect]
     Active Substance: TREPROSTINIL
  9. TYVASO [Suspect]
     Active Substance: TREPROSTINIL
  10. TYVASO [Suspect]
     Active Substance: TREPROSTINIL
  11. TYVASO [Suspect]
     Active Substance: TREPROSTINIL
  12. TYVASO [Suspect]
     Active Substance: TREPROSTINIL
  13. PREDONINE [Concomitant]
     Active Substance: PREDNISOLONE
     Indication: Product used for unknown indication
     Dosage: 1 GRAM, QD
  14. PREDONINE [Concomitant]
     Active Substance: PREDNISOLONE
     Dosage: 9 MG, QD
  15. PREDONINE [Concomitant]
     Active Substance: PREDNISOLONE
     Dosage: 10 MG, QD
  16. LANSOPRAZOLE [Concomitant]
     Active Substance: LANSOPRAZOLE
     Indication: Product used for unknown indication
  17. SULFAMETHOXAZOLE\TRIMETHOPRIM [Concomitant]
     Active Substance: SULFAMETHOXAZOLE\TRIMETHOPRIM
     Indication: Product used for unknown indication
  18. APIXABAN [Concomitant]
     Active Substance: APIXABAN
     Indication: Product used for unknown indication
  19. METFORMIN HYDROCHLORIDE [Concomitant]
     Active Substance: METFORMIN HYDROCHLORIDE
     Indication: Product used for unknown indication
  20. TENELIGLIPTIN HYDROBROMIDE HYDRATE [Concomitant]
     Active Substance: TENELIGLIPTIN HYDROBROMIDE HYDRATE
     Indication: Product used for unknown indication
     Dosage: 80 MG, QD
  21. AMLODIPINE [Concomitant]
     Active Substance: AMLODIPINE BESYLATE
     Indication: Product used for unknown indication
  22. CARBOCYSTEINE [Concomitant]
     Active Substance: CARBOCYSTEINE
     Indication: Product used for unknown indication
  23. TRELEGY ELLIPTA [Concomitant]
     Active Substance: FLUTICASONE FUROATE\UMECLIDINIUM BROMIDE\VILANTEROL TRIFENATATE
     Indication: Product used for unknown indication
  24. FUROSEMIDE [Concomitant]
     Active Substance: FUROSEMIDE
     Indication: Product used for unknown indication
     Dosage: 10 MG, QD
  25. FUROSEMIDE [Concomitant]
     Active Substance: FUROSEMIDE
     Dosage: 20 MG, QD
  26. NINTEDANIB [Concomitant]
     Active Substance: NINTEDANIB
     Indication: Product used for unknown indication

REACTIONS (10)
  - Neoplasm malignant [Fatal]
  - Interstitial lung disease [Fatal]
  - Disease progression [Fatal]
  - Metastases to meninges [Fatal]
  - Bacteraemia [Unknown]
  - Pneumonia aspiration [Unknown]
  - Coronavirus infection [Recovering/Resolving]
  - Urinary tract infection [Unknown]
  - Underdose [Unknown]
  - Off label use [Unknown]

NARRATIVE: CASE EVENT DATE: 20230921
